FAERS Safety Report 6066589-4 (Version None)
Quarter: 2009Q1

REPORT INFORMATION
  Report Type: 
  Country: None (occurrence: None)
  Receive Date: 20090205
  Receipt Date: 20090130
  Transmission Date: 20090719
  Serious: Yes (Hospitalization)
  Sender: FDA-Public Use
  Company Number: B0541219B

PATIENT
  Age: 79 Year
  Sex: Male
  Weight: 94.1 kg

DRUGS (9)
  1. LAPATINIB [Suspect]
     Route: 048
     Dates: start: 20080919
  2. CISPLATIN [Suspect]
     Route: 042
     Dates: start: 20080919
  3. FLUOROURACIL [Suspect]
     Route: 042
     Dates: start: 20080919
  4. DOCETAXEL [Suspect]
     Route: 042
     Dates: start: 20081010
  5. PRIMPERAN TAB [Concomitant]
     Indication: NAUSEA
     Dosage: 10MG THREE TIMES PER DAY
     Route: 048
     Dates: start: 20081121
  6. SELECTOL [Concomitant]
     Indication: HYPERTENSION
     Dosage: 100MG PER DAY
     Route: 048
  7. SIMVASTATIN [Concomitant]
     Dosage: 2MG PER DAY
     Route: 048
  8. CORSODYL [Concomitant]
     Indication: STOMATITIS
     Dosage: 10MG TWICE PER DAY
     Route: 048
     Dates: start: 20081121
  9. FRAXIPARINE [Concomitant]
     Indication: DEEP VEIN THROMBOSIS
     Dosage: .4MG PER DAY
     Route: 058
     Dates: start: 20081121

REACTIONS (1)
  - HYPERCREATINAEMIA [None]
